FAERS Safety Report 5723409-2 (Version None)
Quarter: 2008Q2

REPORT INFORMATION
  Report Type: 
  Country: None (occurrence: None)
  Receive Date: 20080430
  Receipt Date: 20080421
  Transmission Date: 20081010
  Serious: Yes (Hospitalization)
  Sender: FDA-Public Use
  Company Number: PHHY2008ES05484

PATIENT
  Age: 73 Year
  Sex: Male

DRUGS (7)
  1. GLEEVEC [Suspect]
     Indication: CHRONIC MYELOID LEUKAEMIA
     Dosage: 400 MG, QD
     Route: 048
     Dates: start: 20051015, end: 20070701
  2. GLEEVEC [Suspect]
     Dosage: UNK, NO TREATMENT
  3. GLEEVEC [Suspect]
     Dosage: 400 MG, QD
     Route: 048
     Dates: start: 20070701, end: 20080309
  4. SINTROM [Suspect]
     Indication: ANTICOAGULANT THERAPY
     Dosage: 4 MG, UNK
  5. PANTOPRAZOLE SODIUM [Concomitant]
     Dosage: 40 MG, UNK
  6. ADOLONTA [Concomitant]
     Dosage: 50 MG, UNK
  7. ALLOPURINOL [Concomitant]
     Dosage: 300 MG, UNK

REACTIONS (3)
  - ANAEMIA [None]
  - GASTRITIS EROSIVE [None]
  - TRANSFUSION [None]
